FAERS Safety Report 7466410-3 (Version None)
Quarter: 2011Q2

REPORT INFORMATION
  Report Type: 
  Country: None (occurrence: None)
  Receive Date: 20110509
  Receipt Date: 20110505
  Transmission Date: 20111010
  Serious: No
  Sender: FDA-Public Use
  Company Number: US-PFIZER INC-2011097807

PATIENT
  Age: 5 Year
  Sex: Female

DRUGS (1)
  1. ADVIL LIQUI-GELS [Suspect]
     Dosage: UNKNOWN AMOUNT OF 200MG
     Route: 048

REACTIONS (3)
  - ACCIDENTAL OVERDOSE [None]
  - PALLOR [None]
  - ACCIDENTAL DRUG INTAKE BY CHILD [None]
